FAERS Safety Report 14201973 (Version 1)
Quarter: 2017Q4

REPORT INFORMATION
  Report Type: Spontaneous
  Country: US (occurrence: US)
  Receive Date: 20171117
  Receipt Date: 20171117
  Transmission Date: 20180321
  Serious: Yes (Hospitalization, Other)
  Sender: FDA-Public Use
  Company Number: US-ELI_LILLY_AND_COMPANY-US201711002028

PATIENT
  Sex: Male

DRUGS (2)
  1. HUMULIN R [Suspect]
     Active Substance: INSULIN HUMAN
     Indication: TYPE 1 DIABETES MELLITUS
     Dosage: UNK, UNKNOWN
     Route: 065
     Dates: start: 1987
  2. HUMULIN N [Suspect]
     Active Substance: INSULIN HUMAN
     Indication: TYPE 1 DIABETES MELLITUS
     Dosage: UNK UNK, UNKNOWN
     Route: 065
     Dates: start: 1987

REACTIONS (7)
  - Diabetic hyperglycaemic coma [Recovered/Resolved]
  - Fall [Unknown]
  - Dehydration [Unknown]
  - Seasonal allergy [Unknown]
  - Ligament injury [Unknown]
  - Headache [Unknown]
  - Hypersensitivity [Recovered/Resolved]

NARRATIVE: CASE EVENT DATE: 20071106
